FAERS Safety Report 10159142 (Version 7)
Quarter: 2015Q3

REPORT INFORMATION
  Report Type: Report from Study
  Country: CA (occurrence: CA)
  Receive Date: 20140508
  Receipt Date: 20150814
  Transmission Date: 20151125
  Serious: Yes (Other)
  Sender: FDA-Public Use
  Company Number: CA-ROCHE-1396582

PATIENT
  Age: 62 Year
  Sex: Female
  Weight: 76.27 kg

DRUGS (13)
  1. NORTRIPTYLINE [Concomitant]
     Active Substance: NORTRIPTYLINE
  2. IMMUNOGLOBULIN IV [Concomitant]
     Active Substance: HUMAN IMMUNOGLOBULIN G
     Route: 065
     Dates: end: 201108
  3. METHOTREXATE [Concomitant]
     Active Substance: METHOTREXATE
  4. METFORMIN [Concomitant]
     Active Substance: METFORMIN HYDROCHLORIDE
  5. OMEGA 3 [Concomitant]
     Active Substance: OMEGA-3 FATTY ACIDS
  6. FOLIC ACID. [Concomitant]
     Active Substance: FOLIC ACID
  7. DIPHENHYDRAMINE HCL [Suspect]
     Active Substance: DIPHENHYDRAMINE HYDROCHLORIDE
     Indication: PREMEDICATION
     Route: 048
     Dates: start: 20110922
  8. ELTROXIN [Concomitant]
     Active Substance: LEVOTHYROXINE
  9. ACETYLSALICYLIC ACID [Concomitant]
     Active Substance: ASPIRIN
  10. FUROSEMIDE. [Concomitant]
     Active Substance: FUROSEMIDE
  11. RITUXAN [Suspect]
     Active Substance: RITUXIMAB
     Indication: POLYMYOSITIS
     Dosage: ON 29/JAN/2015, MOST RECENT DOSE WAS GIVEN.
     Route: 042
     Dates: start: 20110922
  12. ACETAMINOPHEN. [Suspect]
     Active Substance: ACETAMINOPHEN
     Indication: PREMEDICATION
     Route: 048
     Dates: start: 20110922
  13. METHYLPREDNISOLONE. [Suspect]
     Active Substance: METHYLPREDNISOLONE
     Indication: PREMEDICATION
     Route: 042
     Dates: start: 20110922

REACTIONS (20)
  - Off label use [Unknown]
  - Nasopharyngitis [Recovering/Resolving]
  - Blood pressure fluctuation [Unknown]
  - Hiatus hernia [Unknown]
  - Abdominal pain [Unknown]
  - Infusion related reaction [Unknown]
  - Heart rate increased [Not Recovered/Not Resolved]
  - Oxygen saturation decreased [Unknown]
  - Heart rate increased [Unknown]
  - Asthenia [Unknown]
  - Heart rate increased [Unknown]
  - Back pain [Recovered/Resolved]
  - Blood pressure increased [Not Recovered/Not Resolved]
  - Ear pain [Not Recovered/Not Resolved]
  - Diverticulitis [Unknown]
  - Weight increased [Unknown]
  - Headache [Recovered/Resolved]
  - Fall [Unknown]
  - Injection site extravasation [Unknown]
  - Dry mouth [Unknown]

NARRATIVE: CASE EVENT DATE: 2013
